FAERS Safety Report 8433144-8 (Version None)
Quarter: 2012Q2

REPORT INFORMATION
  Report Type: 
  Country: None (occurrence: None)
  Receive Date: 20120613
  Receipt Date: 20120531
  Transmission Date: 20120825
  Serious: Yes (Hospitalization, Other)
  Sender: FDA-Public Use
  Company Number: IL-ROCHE-1075990

PATIENT
  Age: 72 Year
  Sex: Female

DRUGS (2)
  1. TRASTUZUMAB [Suspect]
     Indication: BREAST CANCER
  2. NAVELBINE [Suspect]
     Indication: PRODUCT USED FOR UNKNOWN INDICATION
     Route: 048

REACTIONS (7)
  - ATRIAL FIBRILLATION [None]
  - RENAL FAILURE [None]
  - SEPSIS [None]
  - PNEUMONIA [None]
  - MULTI-ORGAN FAILURE [None]
  - PYREXIA [None]
  - DISEASE PROGRESSION [None]
